FAERS Safety Report 5140032-1 (Version None)
Quarter: 2006Q4

REPORT INFORMATION
  Report Type: 
  Country: None (occurrence: None)
  Receive Date: 20061026
  Receipt Date: 20061004
  Transmission Date: 20070319
  Serious: Yes (Hospitalization)
  Sender: FDA-Public Use
  Company Number: US200610000989

PATIENT
  Age: 81 Year
  Sex: Female

DRUGS (10)
  1. FORTEO [Suspect]
     Indication: OSTEOPOROSIS
     Dates: start: 20060926
  2. CYMBALTA [Suspect]
     Indication: DEPRESSION
     Dates: start: 20050101
  3. ADVAIR DISKUS 100/50 [Concomitant]
  4. SPIRIVA [Concomitant]
  5. NEXIUM [Concomitant]
  6. CALCIUM [Concomitant]
  7. MULTIVITAMINS (ASCORBIC ACID, ERGOCALCIFEROL, FOLIC ACID, NICOTINAMIDE [Concomitant]
  8. WARFARIN SODIUM [Concomitant]
  9. ESZOPICLONE [Concomitant]
  10. OXYCONTIN [Concomitant]

REACTIONS (6)
  - BILIARY TRACT INFECTION [None]
  - DRY EYE [None]
  - HERNIA REPAIR [None]
  - INJECTION SITE BRUISING [None]
  - MEMORY IMPAIRMENT [None]
  - PHARMACEUTICAL PRODUCT COMPLAINT [None]
